FAERS Safety Report 4470864-4 (Version None)
Quarter: 2004Q4

REPORT INFORMATION
  Report Type: 
  Country: None (occurrence: None)
  Receive Date: 20041011
  Receipt Date: 20040930
  Transmission Date: 20050328
  Serious: Yes (Other)
  Sender: FDA-Public Use
  Company Number: DE-JNJFOC-20041000194

PATIENT
  Age: 27 Year
  Sex: Female

DRUGS (4)
  1. RISPERDAL [Suspect]
     Indication: DEPRESSION
     Route: 049
  2. RISPERDAL [Suspect]
     Indication: PERSONALITY DISORDER
     Route: 049
  3. TOPAMAX [Suspect]
     Route: 049
  4. CIPRAMIL [Suspect]
     Indication: DEPRESSION
     Route: 049

REACTIONS (3)
  - DRUG INTERACTION [None]
  - GRANULOCYTOPENIA [None]
  - HYPERSENSITIVITY [None]
